FAERS Safety Report 4480893-2 (Version None)
Quarter: 2004Q4

REPORT INFORMATION
  Report Type: 
  Country: None (occurrence: None)
  Receive Date: 20041020
  Receipt Date: 20041020
  Transmission Date: 20050328
  Serious: Yes (Hospitalization)
  Sender: FDA-Public Use
  Company Number: None

PATIENT
  Age: 78 Year
  Sex: Male
  Weight: 98 kg

DRUGS (10)
  1. FLAGYL [Suspect]
     Indication: ABDOMINAL PAIN
     Dosage: 500MG PO BID
     Route: 048
     Dates: start: 20041009, end: 20041011
  2. FLAGYL [Suspect]
     Indication: DIVERTICULITIS
     Dosage: 500MG PO BID
     Route: 048
     Dates: start: 20041009, end: 20041011
  3. LEVAQUIN [Suspect]
     Indication: ABDOMINAL PAIN
     Dosage: 500 MG PO ONCE
     Route: 048
     Dates: start: 20041009
  4. LEVAQUIN [Suspect]
     Indication: DIVERTICULITIS
     Dosage: 500 MG PO ONCE
     Route: 048
     Dates: start: 20041009
  5. ALLOPURINOL [Concomitant]
  6. AMLODIPINE [Concomitant]
  7. DIGOXIN [Concomitant]
  8. DOXAZOSIN [Concomitant]
  9. TRICOR [Concomitant]
  10. LOPRESSOR [Concomitant]

REACTIONS (2)
  - GENERALISED ERYTHEMA [None]
  - PRURITUS [None]
